FAERS Safety Report 4958450-0 (Version None)
Quarter: 2006Q1

REPORT INFORMATION
  Report Type: 
  Country: None (occurrence: None)
  Receive Date: 20060127
  Receipt Date: 20050906
  Transmission Date: 20060701
  Serious: Yes (Hospitalization)
  Sender: FDA-Public Use
  Company Number: 2005-US-00011

PATIENT
  Age: 50 Year
  Sex: Female

DRUGS (2)
  1. CLOZAPINE [Suspect]
     Indication: BIPOLAR DISORDER
     Dates: start: 20050801
  2. CLOZAPINE [Suspect]
     Indication: POST-TRAUMATIC STRESS DISORDER
     Dates: start: 20050801

REACTIONS (1)
  - LIMB INJURY [None]
